APPROVED DRUG PRODUCT: LOVENOX (PRESERVATIVE FREE)
Active Ingredient: ENOXAPARIN SODIUM
Strength: 30MG/0.3ML (100MG/ML)
Dosage Form/Route: INJECTABLE;SUBCUTANEOUS
Application: N020164 | Product #001 | TE Code: AP
Applicant: SANOFI AVENTIS US LLC
Approved: Mar 29, 1993 | RLD: Yes | RS: No | Type: RX